FAERS Safety Report 9236837 (Version 1)
Quarter: 2013Q2

REPORT INFORMATION
  Report Type: Spontaneous
  Country: AU (occurrence: AU)
  Receive Date: 20130417
  Receipt Date: 20130417
  Transmission Date: 20140414
  Serious: Yes (Other)
  Sender: FDA-Public Use
  Company Number: AU-BAXTER-2013BAX013980

PATIENT
  Age: 56 Year
  Sex: 0

DRUGS (2)
  1. KIOVIG NORMAL IMMUNOGLOBULIN (HUMAN) 5G/50ML FOR INTRAVENOUS USE INJEC [Suspect]
     Indication: ENDOCRINE OPHTHALMOPATHY
     Route: 042
  2. KIOVIG NORMAL IMMUNOGLOBULIN (HUMAN) 5G/50ML FOR INTRAVENOUS USE INJEC [Suspect]
     Indication: OFF LABEL USE

REACTIONS (1)
  - Deep vein thrombosis [Unknown]
